FAERS Safety Report 25650097 (Version 1)
Quarter: 2025Q3

REPORT INFORMATION
  Report Type: Spontaneous
  Country: CN (occurrence: CN)
  Receive Date: 20250806
  Receipt Date: 20250806
  Transmission Date: 20251021
  Serious: Yes (Hospitalization)
  Sender: BEIGENE
  Company Number: CN-BEIGENE-BGN-2025-012572

PATIENT
  Age: 66 Year
  Weight: 68 kg

DRUGS (14)
  1. TISLELIZUMAB [Suspect]
     Active Substance: TISLELIZUMAB
     Indication: Nasopharyngeal cancer
     Dosage: 200 MILLIGRAM,D1,Q3WK
  2. TISLELIZUMAB [Suspect]
     Active Substance: TISLELIZUMAB
     Dosage: 200 MILLIGRAM,D1,Q3WK
     Route: 041
  3. TISLELIZUMAB [Suspect]
     Active Substance: TISLELIZUMAB
     Dosage: 200 MILLIGRAM,D1,Q3WK
     Route: 041
  4. TISLELIZUMAB [Suspect]
     Active Substance: TISLELIZUMAB
     Dosage: 200 MILLIGRAM,D1,Q3WK
  5. GEMCITABINE [Suspect]
     Active Substance: GEMCITABINE
     Indication: Nasopharyngeal cancer
  6. GEMCITABINE [Suspect]
     Active Substance: GEMCITABINE
     Route: 041
  7. GEMCITABINE [Suspect]
     Active Substance: GEMCITABINE
     Route: 041
  8. GEMCITABINE [Suspect]
     Active Substance: GEMCITABINE
  9. NEDAPLATIN [Suspect]
     Active Substance: NEDAPLATIN
     Indication: Nasopharyngeal cancer
     Dosage: 130 MILLIGRAM,D1, Q3WK
  10. NEDAPLATIN [Suspect]
     Active Substance: NEDAPLATIN
     Dosage: 130 MILLIGRAM,D1, Q3WK
     Route: 041
  11. NEDAPLATIN [Suspect]
     Active Substance: NEDAPLATIN
     Dosage: 130 MILLIGRAM,D1, Q3WK
     Route: 041
  12. NEDAPLATIN [Suspect]
     Active Substance: NEDAPLATIN
     Dosage: 130 MILLIGRAM,D1, Q3WK
  13. SODIUM CHLORIDE [Concomitant]
     Active Substance: SODIUM CHLORIDE
     Indication: Nasopharyngeal cancer
     Route: 041
  14. SODIUM CHLORIDE [Concomitant]
     Active Substance: SODIUM CHLORIDE
     Indication: Myelosuppression

REACTIONS (1)
  - Myelosuppression [Recovering/Resolving]
